FAERS Safety Report 7551068-5 (Version None)
Quarter: 2011Q2

REPORT INFORMATION
  Report Type: 
  Country: None (occurrence: None)
  Receive Date: 20110609
  Receipt Date: 20110524
  Transmission Date: 20111010
  Serious: Yes (Hospitalization, Other)
  Sender: FDA-Public Use
  Company Number: 2011MA006485

PATIENT
  Age: 43 Year
  Sex: Female

DRUGS (1)
  1. VENLAFAXINE HYDROCHLORIDE [Suspect]
     Indication: DEPRESSION
     Dosage: 300 MG;QD

REACTIONS (2)
  - STRESS CARDIOMYOPATHY [None]
  - ACCIDENTAL OVERDOSE [None]
